FAERS Safety Report 20609983 (Version 1)
Quarter: 2022Q1

REPORT INFORMATION
  Report Type: Spontaneous
  Country: JP (occurrence: JP)
  Receive Date: 20220318
  Receipt Date: 20220318
  Transmission Date: 20220423
  Serious: Yes (Hospitalization)
  Sender: FDA-Public Use
  Company Number: JP-NOVARTISPH-NVSJ2022JP004521

PATIENT
  Age: 70 Year
  Sex: Male

DRUGS (3)
  1. ENTRESTO [Suspect]
     Active Substance: SACUBITRIL\VALSARTAN
     Indication: Cardiac failure
     Dosage: UNK
     Route: 048
  2. SAMSCA [Suspect]
     Active Substance: TOLVAPTAN
     Indication: Cardiac failure
     Dosage: 3.75 MG
     Route: 048
  3. SAMSCA [Suspect]
     Active Substance: TOLVAPTAN
     Dosage: UNK
     Route: 048

REACTIONS (1)
  - Condition aggravated [Recovering/Resolving]

NARRATIVE: CASE EVENT DATE: 20220311
